FAERS Safety Report 8950393 (Version 3)
Quarter: 2012Q4

REPORT INFORMATION
  Report Type: 
  Country: US (occurrence: US)
  Receive Date: 20121207
  Receipt Date: 20121220
  Transmission Date: 20130627
  Serious: Yes (Other)
  Sender: FDA-Public Use
  Company Number: US-PURDUE-USA-2012-0096490

PATIENT
  Age: 60 None
  Sex: Female

DRUGS (7)
  1. OXYCONTIN (NDA 22-272) [Suspect]
     Indication: BACK PAIN
     Dosage: 160 mg, daily
     Route: 048
  2. OXYCONTIN (NDA 22-272) [Suspect]
     Indication: SPINAL PAIN
     Dosage: 60 mg, daily
     Route: 048
     Dates: start: 201210
  3. OXYCONTIN (NDA 22-272) [Suspect]
     Dosage: 35 mg, daily
     Route: 048
     Dates: start: 201210
  4. OXYCONTIN (NDA 22-272) [Suspect]
     Dosage: 30 mg, UNK
  5. OXYCONTIN (NDA 22-272) [Suspect]
     Dosage: 40 mg, bid
     Route: 048
     Dates: start: 20121207
  6. ALBUTEROL                          /00139501/ [Concomitant]
     Indication: CHRONIC OBSTRUCTIVE PULMONARY DISEASE
     Dosage: 2 puff, prn
     Route: 055
     Dates: start: 1992
  7. PREDNISONE [Concomitant]
     Dosage: 70 mg, UNK

REACTIONS (12)
  - Intestinal perforation [Unknown]
  - Colostomy closure [Unknown]
  - Spinal fusion surgery [Unknown]
  - Intervertebral disc protrusion [Unknown]
  - Angina pectoris [Not Recovered/Not Resolved]
  - Gait disturbance [Unknown]
  - Activities of daily living impaired [Unknown]
  - Muscle spasms [Not Recovered/Not Resolved]
  - Breakthrough pain [Not Recovered/Not Resolved]
  - Constipation [Unknown]
  - Drug ineffective [Unknown]
  - Inadequate analgesia [Unknown]
